FAERS Safety Report 16213826 (Version 1)
Quarter: 2019Q2

REPORT INFORMATION
  Report Type: Spontaneous
  Country: US (occurrence: US)
  Receive Date: 20190418
  Receipt Date: 20190418
  Transmission Date: 20190711
  Serious: No
  Sender: FDA-Public Use
  Company Number: US-BAUSCH-BL-2018-009294

PATIENT
  Age: 94 Year
  Sex: Male

DRUGS (1)
  1. LATANOPROST. [Suspect]
     Active Substance: LATANOPROST
     Indication: GLAUCOMA
     Dosage: AT NIGHT
     Route: 047
     Dates: start: 2008

REACTIONS (3)
  - Treatment noncompliance [Unknown]
  - Product lot number issue [Unknown]
  - Eye irritation [Recovered/Resolved]
